FAERS Safety Report 21915766 (Version 4)
Quarter: 2024Q1

REPORT INFORMATION
  Report Type: Spontaneous
  Country: US (occurrence: US)
  Receive Date: 20230126
  Receipt Date: 20240312
  Transmission Date: 20240410
  Serious: Yes (Other)
  Sender: FDA-Public Use
  Company Number: US-PFIZER INC-PV202300015807

PATIENT
  Age: 52 Year
  Sex: Male

DRUGS (1)
  1. INLYTA [Suspect]
     Active Substance: AXITINIB
     Dosage: 5 MG
     Dates: start: 202204

REACTIONS (10)
  - Adrenal insufficiency [Unknown]
  - Dry mouth [Unknown]
  - Thyroid function test abnormal [Not Recovered/Not Resolved]
  - Blood calcium decreased [Not Recovered/Not Resolved]
  - Hypertension [Unknown]
  - Decreased appetite [Unknown]
  - Taste disorder [Recovering/Resolving]
  - Nausea [Not Recovered/Not Resolved]
  - Fungal infection [Unknown]
  - Intervertebral disc protrusion [Unknown]

NARRATIVE: CASE EVENT DATE: 20220101
